FAERS Safety Report 20938836 (Version 1)
Quarter: 2022Q2

REPORT INFORMATION
  Report Type: Spontaneous
  Country: US (occurrence: None)
  Receive Date: 20220608
  Receipt Date: 20220608
  Transmission Date: 20220721
  Serious: Yes (Disabling)
  Sender: FDA-Public Use
  Company Number: None

PATIENT
  Age: 57 Year
  Sex: Female
  Weight: 51.3 kg

DRUGS (15)
  1. DRONABINOL [Suspect]
     Active Substance: DRONABINOL
     Indication: Decreased appetite
     Dosage: OTHER QUANTITY : 1 CAPSULE(S);?FREQUENCY : DAILY;?
     Route: 048
     Dates: start: 20220607, end: 20220607
  2. DRONABINOL [Suspect]
     Active Substance: DRONABINOL
     Indication: Decreased appetite
     Dosage: OTHER QUANTITY : 1 CAPSULE(S);?FREQUENCY : DAILY;?
     Route: 048
     Dates: start: 20211104, end: 20211105
  3. TOPROL XL [Concomitant]
     Active Substance: METOPROLOL SUCCINATE
  4. COZAAR [Concomitant]
     Active Substance: LOSARTAN POTASSIUM
  5. NEURONTIN [Concomitant]
     Active Substance: GABAPENTIN
  6. CYMBALTA [Concomitant]
     Active Substance: DULOXETINE HYDROCHLORIDE
  7. VITAMIN B12 [Concomitant]
     Active Substance: CYANOCOBALAMIN
  8. XARELTO [Concomitant]
     Active Substance: RIVAROXABAN
  9. SYNTHROID [Concomitant]
     Active Substance: LEVOTHYROXINE SODIUM
  10. TIMOLOL [Concomitant]
     Active Substance: TIMOLOL
  11. VITAMIN C [Concomitant]
     Active Substance: ASCORBIC ACID
  12. VITAMIN D3 [Concomitant]
     Active Substance: CHOLECALCIFEROL
  13. Magnesium Complex [Concomitant]
  14. LUTEIN [Concomitant]
     Active Substance: LUTEIN
  15. ZEAXANTHIN [Concomitant]
     Active Substance: ZEAXANTHIN

REACTIONS (7)
  - Hypoaesthesia [None]
  - Hypoaesthesia [None]
  - Somnolence [None]
  - Confusional state [None]
  - Staring [None]
  - Disorientation [None]
  - Disturbance in attention [None]

NARRATIVE: CASE EVENT DATE: 20220607
